FAERS Safety Report 4925655-4 (Version None)
Quarter: 2006Q1

REPORT INFORMATION
  Report Type: 
  Country: None (occurrence: None)
  Receive Date: 20060228
  Receipt Date: 20050118
  Transmission Date: 20060701
  Serious: No
  Sender: FDA-Public Use
  Company Number: US-GLAXOSMITHKLINE-A0541114A

PATIENT
  Age: 13 Year
  Sex: Female

DRUGS (3)
  1. LAMICTAL [Suspect]
     Indication: EPILEPSY
     Dosage: 100MG TWICE PER DAY
     Route: 048
  2. ZONEGRAN [Concomitant]
  3. FOCALIN [Concomitant]

REACTIONS (2)
  - RASH [None]
  - RASH PRURITIC [None]
